FAERS Safety Report 26063592 (Version 1)
Quarter: 2025Q4

REPORT INFORMATION
  Report Type: Spontaneous
  Country: US (occurrence: None)
  Receive Date: 20251118
  Receipt Date: 20251118
  Transmission Date: 20260117
  Serious: No
  Sender: FDA-CTU
  Company Number: None

PATIENT
  Age: 44 Year
  Sex: Female
  Weight: 74.1 kg

DRUGS (7)
  1. CABOMETYX [Suspect]
     Active Substance: CABOZANTINIB S-MALATE
     Indication: Renal cancer
     Dosage: FREQUENCY : DAILY;?
     Route: 048
     Dates: start: 20250808
  2. HERBALS\TURMERIC [Concomitant]
     Active Substance: HERBALS\TURMERIC
  3. MENAQUINONE 6 [Concomitant]
     Active Substance: MENAQUINONE 6
  4. FISH OIL [Concomitant]
     Active Substance: FISH OIL
  5. Vitamin E 180mg [Concomitant]
  6. VITAMIN D3 [Concomitant]
     Active Substance: CHOLECALCIFEROL
  7. ZINC [Concomitant]
     Active Substance: ZINC

REACTIONS (4)
  - Dysgeusia [None]
  - Visual impairment [None]
  - Headache [None]
  - Erythema [None]

NARRATIVE: CASE EVENT DATE: 20251118
